FAERS Safety Report 4434305-5 (Version None)
Quarter: 2004Q3

REPORT INFORMATION
  Report Type: 
  Country: None (occurrence: None)
  Receive Date: 20040826
  Receipt Date: 20040819
  Transmission Date: 20050211
  Serious: Yes (Hospitalization)
  Sender: FDA-Public Use
  Company Number: FR-MERCK-0408USA01667

PATIENT
  Age: 82 Year
  Sex: Female

DRUGS (4)
  1. ALTHIAZIDE AND SPIRONOLACTONE [Suspect]
     Indication: HYPERTENSION
     Route: 048
     Dates: end: 20040112
  2. PRETERAX [Suspect]
     Indication: HYPERTENSION
     Route: 048
     Dates: end: 20040112
  3. PRINIVIL [Suspect]
     Indication: HYPERTENSION
     Route: 048
     Dates: end: 20040101
  4. PRINIVIL [Suspect]
     Route: 048
     Dates: start: 20040101

REACTIONS (5)
  - ARRHYTHMIA [None]
  - DRUG INTERACTION [None]
  - HYPERKALAEMIA [None]
  - LOSS OF CONSCIOUSNESS [None]
  - SYNCOPE [None]
